FAERS Safety Report 18392392 (Version 1)
Quarter: 2020Q4

REPORT INFORMATION
  Report Type: Spontaneous
  Country: US (occurrence: US)
  Receive Date: 20201016
  Receipt Date: 20201016
  Transmission Date: 20210114
  Serious: Yes (Other)
  Sender: FDA-Public Use
  Company Number: US-LUPIN PHARMACEUTICALS INC.-2020-07190

PATIENT
  Age: 57 Year
  Sex: Female

DRUGS (8)
  1. AZATHIOPRINE. [Concomitant]
     Active Substance: AZATHIOPRINE
     Indication: IMMUNOSUPPRESSION
     Dosage: 75 MILLIGRAM, QD
     Route: 065
  2. PHENYTOIN SODIUM. [Interacting]
     Active Substance: PHENYTOIN SODIUM
     Dosage: 200 MILLIGRAM, QD (EXTENDED RELEASE EVERY EVENING)
     Route: 065
  3. TACROLIMUS. [Interacting]
     Active Substance: TACROLIMUS
     Dosage: 10 MILLIGRAM, QD (EXTENDED RELEASE)
     Route: 065
  4. PHENYTOIN SODIUM. [Interacting]
     Active Substance: PHENYTOIN SODIUM
     Dosage: 50 MILLIGRAM, QD (IMMEDIATE RELEASE EVERY MORNING)
     Route: 065
  5. PHENYTOIN SODIUM. [Suspect]
     Active Substance: PHENYTOIN SODIUM
     Indication: EPILEPSY
     Dosage: 100 MILLIGRAM, QD (EXTENDED RELEASE EVERY MORNING)
     Route: 065
  6. PREDNISONE. [Concomitant]
     Active Substance: PREDNISONE
     Indication: IMMUNOSUPPRESSION
     Dosage: 5 MILLIGRAM, QD
     Route: 065
  7. TACROLIMUS. [Interacting]
     Active Substance: TACROLIMUS
     Dosage: 12 MILLIGRAM, QD (EXTENDED RELEASE)
     Route: 065
  8. TACROLIMUS. [Interacting]
     Active Substance: TACROLIMUS
     Indication: IMMUNOSUPPRESSION
     Dosage: 6 MILLIGRAM, BID (IMMEDIATE RELEASE)
     Route: 065

REACTIONS (2)
  - Drug interaction [Unknown]
  - Drug level abnormal [Unknown]
